FAERS Safety Report 8073784-1 (Version None)
Quarter: 2012Q1

REPORT INFORMATION
  Report Type: 
  Country: None (occurrence: None)
  Receive Date: 20120126
  Receipt Date: 20120120
  Transmission Date: 20120608
  Serious: Yes (Hospitalization)
  Sender: FDA-Public Use
  Company Number: BR-ROCHE-1032730

PATIENT
  Age: 45 Year
  Sex: Male

DRUGS (1)
  1. MABTHERA [Suspect]
     Indication: RHEUMATOID ARTHRITIS
     Dosage: 4 RITUXIMAB INFUSIONS BETWEEN 01/AUG/2009 AND 01/APR/2010
     Route: 042
     Dates: start: 20090801

REACTIONS (1)
  - PHARYNGEAL DISORDER [None]
